FAERS Safety Report 9227546 (Version 1)
Quarter: 2013Q2

REPORT INFORMATION
  Report Type: Spontaneous
  Country: FR (occurrence: FR)
  Receive Date: 20130412
  Receipt Date: 20130412
  Transmission Date: 20140414
  Serious: Yes (Death, Hospitalization)
  Sender: FDA-Public Use
  Company Number: PHHY2013FR035001

PATIENT
  Age: 28 Year
  Sex: Female

DRUGS (3)
  1. TEGRETOL [Suspect]
  2. IOMERON [Suspect]
     Dosage: 350 MG/ML, UNK
     Route: 042
     Dates: start: 20130321
  3. DANTRIUM [Suspect]

REACTIONS (4)
  - Cardio-respiratory arrest [Fatal]
  - Syncope [Fatal]
  - Pulse absent [Fatal]
  - Hypoventilation [Fatal]
